FAERS Safety Report 18492351 (Version 2)
Quarter: 2020Q4

REPORT INFORMATION
  Report Type: Spontaneous
  Country: RU (occurrence: RU)
  Receive Date: 20201111
  Receipt Date: 20201128
  Transmission Date: 20210114
  Serious: Yes (Other)
  Sender: FDA-Public Use
  Company Number: NVSC2020RU296626

PATIENT
  Age: 33 Year
  Sex: Female

DRUGS (2)
  1. ANASTROZOLE. [Suspect]
     Active Substance: ANASTROZOLE
     Indication: PRODUCT USED FOR UNKNOWN INDICATION
     Dosage: 1 MG, QD
     Route: 048
     Dates: start: 201710, end: 201811
  2. ZOLEDRONIC ACID [Suspect]
     Active Substance: ZOLEDRONIC ACID
     Indication: PRODUCT USED FOR UNKNOWN INDICATION
     Dosage: 4 MG, Q4W
     Route: 042
     Dates: start: 201710

REACTIONS (4)
  - Concomitant disease progression [Unknown]
  - Breast cancer [Unknown]
  - Metastases to spine [Unknown]
  - Metastases to liver [Unknown]

NARRATIVE: CASE EVENT DATE: 20171024
